FAERS Safety Report 7699411-0 (Version None)
Quarter: 2011Q3

REPORT INFORMATION
  Report Type: 
  Country: None (occurrence: None)
  Receive Date: 20110819
  Receipt Date: 20110810
  Transmission Date: 20111222
  Serious: Yes (Hospitalization, Disabling, Other)
  Sender: FDA-Public Use
  Company Number: US-ASTRAZENECA-2011SE14054

PATIENT
  Age: 41 Year
  Sex: Female

DRUGS (39)
  1. SEROQUEL [Suspect]
     Route: 048
  2. SEROQUEL [Suspect]
     Route: 048
     Dates: start: 20090702
  3. VALIUM [Concomitant]
     Dosage: 10 MG ONE TO TWO AS NEEDED
  4. ASCORBIC ACID [Concomitant]
     Dosage: ONE DAILY
  5. VITAMIN B6 [Concomitant]
     Dosage: ONE DAILY
  6. COUMADIN [Concomitant]
  7. PREDNISONE [Concomitant]
     Dosage: 10 MG 2 DAILY FOR 2 DAYS, THEN 1 DAILY FOR 2 DAYS THEN HALF TABLET DAILY FOR 2 DAYS AND THEN STOP
  8. SEROQUEL [Suspect]
     Indication: BIPOLAR DISORDER
     Route: 048
     Dates: start: 20101101
  9. SEROQUEL [Suspect]
     Route: 048
  10. LISINOPRIL [Concomitant]
     Route: 048
  11. ASPIRIN [Concomitant]
  12. SEROQUEL [Suspect]
     Route: 048
  13. SEROQUEL [Suspect]
     Route: 048
     Dates: start: 20090702
  14. LEVETIRACETAM [Concomitant]
     Dosage: 500 MG ONE TO TWO TIMES A DAY
  15. SOMA [Concomitant]
  16. ETODOLAC [Concomitant]
  17. RANITIDINE [Concomitant]
  18. POTASSIUM ACETATE [Concomitant]
  19. NEURONTIN [Concomitant]
  20. SELENIUM [Concomitant]
     Dosage: ONE DAILY
  21. HUMALOG [Concomitant]
     Dosage: THREE TIMES PER WEEK
  22. SEROQUEL [Suspect]
     Route: 048
     Dates: end: 20101101
  23. DEPAKOTE ER [Concomitant]
  24. VITAMIN E [Concomitant]
     Dosage: ONE DAILY
  25. ZINC [Concomitant]
     Dosage: ONE DAILY
  26. NEXIUM [Suspect]
     Route: 048
  27. SEROQUEL [Suspect]
     Route: 048
  28. HYDROCODONE [Concomitant]
     Indication: PAIN
  29. FISH OIL [Concomitant]
     Dosage: ONE DAILY
  30. VITAMIN D [Concomitant]
     Dosage: ONE DAILY
     Route: 048
  31. VITAMIN B-12 [Concomitant]
     Dosage: ONE DAILY
  32. ALLEGRA [Concomitant]
     Dosage: ONE DAILY
  33. MUPIROCIN [Concomitant]
     Dosage: TO EARS AS NEEDED
     Route: 061
  34. PROMETHAZINE [Concomitant]
     Indication: NAUSEA
  35. NEXIUM [Suspect]
     Indication: GASTROOESOPHAGEAL REFLUX DISEASE
     Route: 048
  36. SEROQUEL [Suspect]
     Indication: SLEEP APNOEA SYNDROME
     Route: 048
     Dates: start: 20101101
  37. SEROQUEL [Suspect]
     Route: 048
     Dates: end: 20101101
  38. EFFEXOR [Concomitant]
  39. CUBICIN [Concomitant]
     Indication: THROMBOSIS PROPHYLAXIS

REACTIONS (22)
  - SLEEP APNOEA SYNDROME [None]
  - TYPE 2 DIABETES MELLITUS [None]
  - POSTOPERATIVE WOUND INFECTION [None]
  - OSTEONECROSIS [None]
  - FALL [None]
  - HYPOTENSION [None]
  - HIP SURGERY [None]
  - WALKING AID USER [None]
  - BIPOLAR DISORDER [None]
  - MUSCULAR WEAKNESS [None]
  - NEUROPATHY PERIPHERAL [None]
  - HIP ARTHROPLASTY [None]
  - HAEMORRHAGIC ANAEMIA [None]
  - ANGER [None]
  - RENAL FAILURE ACUTE [None]
  - GOUT [None]
  - HYPERTENSION [None]
  - SYSTEMIC LUPUS ERYTHEMATOSUS [None]
  - MUSCULOSKELETAL DISCOMFORT [None]
  - IRRITABILITY [None]
  - AGITATION [None]
  - OFF LABEL USE [None]
